FAERS Safety Report 8221324-6 (Version None)
Quarter: 2012Q1

REPORT INFORMATION
  Report Type: 
  Country: None (occurrence: None)
  Receive Date: 20120320
  Receipt Date: 20120316
  Transmission Date: 20120608
  Serious: Yes (Death)
  Sender: FDA-Public Use
  Company Number: PHHY2012CA015107

PATIENT
  Sex: Male

DRUGS (4)
  1. CLOZARIL [Suspect]
     Indication: SCHIZOPHRENIA
     Route: 048
     Dates: start: 20090722
  2. LEVOTHYROXINE SODIUM [Concomitant]
     Dosage: 150 UG, QAM
  3. METFORMIN HCL [Concomitant]
     Dosage: 250 MG, TID
  4. CLOZARIL [Suspect]
     Dosage: 300 MG, QHS
     Route: 048

REACTIONS (6)
  - ARTERIOSCLEROSIS [None]
  - AORTIC ARTERIOSCLEROSIS [None]
  - ARTERIOSCLEROSIS CORONARY ARTERY [None]
  - CHRONIC OBSTRUCTIVE PULMONARY DISEASE [None]
  - VASCULAR ANOMALY [None]
  - ANTIPSYCHOTIC DRUG LEVEL INCREASED [None]
